FAERS Safety Report 9903485 (Version 2)
Quarter: 2014Q3

REPORT INFORMATION
  Report Type: Spontaneous
  Country: US (occurrence: US)
  Receive Date: 20140217
  Receipt Date: 20140815
  Transmission Date: 20150326
  Serious: Yes (Hospitalization, Other)
  Sender: FDA-Public Use
  Company Number: US-009507513-1402USA007259

PATIENT
  Sex: Female

DRUGS (2)
  1. NUVARING [Suspect]
     Active Substance: ETHINYL ESTRADIOL\ETONOGESTREL
     Indication: DYSMENORRHOEA
     Dosage: UNK
     Route: 067
     Dates: start: 200604
  2. NUVARING [Suspect]
     Active Substance: ETHINYL ESTRADIOL\ETONOGESTREL
     Indication: MENORRHAGIA

REACTIONS (8)
  - Uterine dilation and curettage [Unknown]
  - Pulmonary embolism [Unknown]
  - Vulvovaginal pruritus [Unknown]
  - Embolism venous [Unknown]
  - Gastritis [Unknown]
  - Uterine leiomyoma [Unknown]
  - Off label use [Unknown]
  - Endometrial ablation [Unknown]

NARRATIVE: CASE EVENT DATE: 2006
